FAERS Safety Report 4525979-9 (Version None)
Quarter: 2004Q4

REPORT INFORMATION
  Report Type: 
  Country: None (occurrence: None)
  Receive Date: 20041214
  Receipt Date: 20041201
  Transmission Date: 20050328
  Serious: Yes (Other)
  Sender: FDA-Public Use
  Company Number: GB-JNJFOC-20041200686

PATIENT
  Sex: Female

DRUGS (3)
  1. REMICADE [Suspect]
     Indication: CROHN'S DISEASE
     Route: 042
  2. DIGOXIN [Concomitant]
  3. WARFARIN SODIUM [Concomitant]

REACTIONS (1)
  - ANKYLOSING SPONDYLITIS [None]
